FAERS Safety Report 10004238 (Version 1)
Quarter: 2014Q1

REPORT INFORMATION
  Report Type: Spontaneous
  Country: US (occurrence: US)
  Receive Date: 20140312
  Receipt Date: 20140312
  Transmission Date: 20141002
  Serious: No
  Sender: FDA-Public Use
  Company Number: US-PFIZER INC-2014070507

PATIENT
  Age: 57 Year
  Sex: Male
  Weight: 86.2 kg

DRUGS (4)
  1. GABAPENTIN [Suspect]
     Indication: NEURALGIA
     Dosage: UNK
     Dates: start: 2013, end: 201312
  2. GABAPENTIN [Suspect]
     Indication: BACK PAIN
  3. NORTRIPTYLINE [Concomitant]
     Indication: DEPRESSION
     Dosage: 10 MG, 1X/DAY
  4. SIMVASTATIN [Concomitant]
     Indication: BLOOD CHOLESTEROL ABNORMAL
     Dosage: 20 MG, 1X/DAY

REACTIONS (1)
  - Alopecia [Recovering/Resolving]
